FAERS Safety Report 16502295 (Version 1)
Quarter: 2019Q3

REPORT INFORMATION
  Report Type: Spontaneous
  Country: US (occurrence: US)
  Receive Date: 20190630
  Receipt Date: 20190630
  Transmission Date: 20191004
  Serious: No
  Sender: FDA-Public Use
  Company Number: None

PATIENT
  Age: 63 Year
  Sex: Female
  Weight: 76.5 kg

DRUGS (6)
  1. LOSARTAN POTASSIUM. [Concomitant]
     Active Substance: LOSARTAN POTASSIUM
  2. VITAMIN C [Concomitant]
     Active Substance: ASCORBIC ACID
  3. SYNTHROID [Concomitant]
     Active Substance: LEVOTHYROXINE SODIUM
  4. CALCIUM [Concomitant]
     Active Substance: CALCIUM
  5. SOMADERM TRANSDERMAL [Suspect]
     Active Substance: HOMEOPATHICS
     Indication: GROWTH HORMONE DEFICIENCY
     Dosage: ?          QUANTITY:1 PUMP;?
     Route: 061
  6. ATIVAN [Concomitant]
     Active Substance: LORAZEPAM

REACTIONS (7)
  - Palpitations [None]
  - Insomnia [None]
  - Chest discomfort [None]
  - Manufacturing materials issue [None]
  - Feeling abnormal [None]
  - Hypertension [None]
  - Headache [None]
